FAERS Safety Report 15283223 (Version 1)
Quarter: 2018Q3

REPORT INFORMATION
  Report Type: Spontaneous
  Country: FR (occurrence: FR)
  Receive Date: 20180816
  Receipt Date: 20180816
  Transmission Date: 20181010
  Serious: Yes (Other)
  Sender: FDA-Public Use
  Company Number: FR-ACCORD-070654

PATIENT
  Age: 30 Year
  Sex: Male
  Weight: 75 kg

DRUGS (1)
  1. FINASTERIDE ACCORD [Suspect]
     Active Substance: FINASTERIDE
     Indication: ALOPECIA
     Dosage: STRENGTH: 5 MG
     Route: 048
     Dates: start: 20171102, end: 20171111

REACTIONS (4)
  - Libido disorder [Not Recovered/Not Resolved]
  - Depression [Not Recovered/Not Resolved]
  - Delirium [Not Recovered/Not Resolved]
  - Off label use [Unknown]

NARRATIVE: CASE EVENT DATE: 20171111
